FAERS Safety Report 18592350 (Version 9)
Quarter: 2021Q3

REPORT INFORMATION
  Report Type: Spontaneous
  Country: AT (occurrence: AT)
  Receive Date: 20201209
  Receipt Date: 20210916
  Transmission Date: 20211014
  Serious: Yes (Hospitalization, Other)
  Sender: FDA-Public Use
  Company Number: AT-AMGEN-AUTSP2020194988

PATIENT
  Age: 67 Year
  Sex: Female
  Weight: 89 kg

DRUGS (47)
  1. TRASTUZUMAB. [Suspect]
     Active Substance: TRASTUZUMAB
     Dosage: 438 MILLIGRAM, Q3WK
     Route: 041
     Dates: start: 20181017, end: 20181017
  2. PERTUZUMAB. [Suspect]
     Active Substance: PERTUZUMAB
     Dosage: 420 MILLIGRAM
     Route: 042
     Dates: start: 20170714, end: 20171030
  3. FULVESTRANT. [Suspect]
     Active Substance: FULVESTRANT
     Indication: BREAST CANCER METASTATIC
     Dosage: 500 MILLIGRAM, Q2WK
     Route: 030
     Dates: start: 20181128
  4. ANASTROZOLE. [Suspect]
     Active Substance: ANASTROZOLE
     Dosage: 1 MILLIGRAM, QD
     Route: 048
     Dates: start: 20170424
  5. FORTECORTIN [DEXAMETHASONE] [Concomitant]
     Active Substance: DEXAMETHASONE
     Dosage: UNK
     Dates: start: 20181017
  6. VIBRAMYCIN [Concomitant]
     Active Substance: DOXYCYCLINE
     Indication: SINUSITIS
     Dosage: UNK
     Dates: start: 20180417, end: 20180615
  7. URBASON [METHYLPREDNISOLONE] [Concomitant]
     Active Substance: METHYLPREDNISOLONE
     Dosage: UNK
     Dates: start: 20191210
  8. TRASTUZUMAB. [Suspect]
     Active Substance: TRASTUZUMAB
     Dosage: 408 MILLIGRAM, Q3WK
     Route: 042
     Dates: start: 20210424
  9. XGEVA [Suspect]
     Active Substance: DENOSUMAB
     Indication: PRODUCT USED FOR UNKNOWN INDICATION
     Dosage: UNK
     Route: 065
     Dates: start: 20170505, end: 20180329
  10. MOLAXOLE [Concomitant]
     Active Substance: POLYETHYLENE GLYCOL 3350\POTASSIUM CHLORIDE\SODIUM BICARBONATE\SODIUM CHLORIDE
     Dosage: UNK
     Dates: start: 20180715
  11. TRASTUZUMAB. [Suspect]
     Active Substance: TRASTUZUMAB
     Dosage: 438 MILLIGRAM, Q3WK
     Route: 042
     Dates: start: 20180926, end: 20180926
  12. TRASTUZUMAB. [Suspect]
     Active Substance: TRASTUZUMAB
     Dosage: 408 MILLIGRAM, Q3WK
     Route: 041
     Dates: start: 20181219, end: 20200424
  13. TRASTUZUMAB. [Suspect]
     Active Substance: TRASTUZUMAB
     Dosage: 408 MILLIGRAM, Q3WK
     Route: 042
     Dates: start: 20200515
  14. PERTUZUMAB. [Suspect]
     Active Substance: PERTUZUMAB
     Indication: BREAST CANCER METASTATIC
     Dosage: 840 MILLIGRAM, Q3WK
     Route: 042
     Dates: start: 20170324, end: 20170324
  15. PERTUZUMAB. [Suspect]
     Active Substance: PERTUZUMAB
     Dosage: 420 MILLIGRAM, QWK
     Route: 042
     Dates: start: 20171213, end: 20180608
  16. DOCETAXEL. [Suspect]
     Active Substance: DOCETAXEL
     Indication: BREAST CANCER METASTATIC
     Dosage: 137 MILLIGRAM, Q3WK
     Route: 042
     Dates: start: 20180608, end: 20180608
  17. FOSTER [Concomitant]
     Active Substance: BECLOMETHASONE\FORMOTEROL
     Indication: DYSPNOEA
     Dosage: UNK
     Dates: start: 20171120
  18. PERTUZUMAB. [Suspect]
     Active Substance: PERTUZUMAB
     Dosage: 420 MILLIGRAM, QWK
     Route: 042
     Dates: start: 20180723
  19. DOCETAXEL. [Suspect]
     Active Substance: DOCETAXEL
     Dosage: 132.78 MILLIGRAM, Q3WK
     Route: 042
     Dates: start: 20180926, end: 20180926
  20. FULVESTRANT. [Suspect]
     Active Substance: FULVESTRANT
     Dosage: 500 MILLIGRAM, Q2WK
     Route: 030
     Dates: start: 20181226
  21. FORTECORTIN [DEXAMETHASONE] [Concomitant]
     Active Substance: DEXAMETHASONE
     Dosage: UNK
     Dates: start: 20180723
  22. KYTRIL [Concomitant]
     Active Substance: GRANISETRON HYDROCHLORIDE
     Dosage: UNK
     Dates: start: 20180608
  23. CORTISON [Concomitant]
     Active Substance: CORTISONE ACETATE
     Dosage: UNK
     Dates: start: 20180608, end: 20180608
  24. TRASTUZUMAB. [Suspect]
     Active Substance: TRASTUZUMAB
     Indication: BREAST CANCER METASTATIC
     Dosage: 712 MILLIGRAM, Q3WK
     Route: 041
     Dates: start: 20170324, end: 20170324
  25. DOCETAXEL. [Suspect]
     Active Substance: DOCETAXEL
     Dosage: 106.22 MILLIGRAM, Q3WK
     Route: 042
     Dates: start: 20181017, end: 20181017
  26. DOCETAXEL. [Suspect]
     Active Substance: DOCETAXEL
     Dosage: 134.32 MILLIGRAM, Q3WK
     Route: 042
     Dates: start: 20180723, end: 20180904
  27. FENISTIL [Concomitant]
     Active Substance: DIMETHINDENE
     Dosage: UNK
     Dates: start: 20170414
  28. MEXALEN [Concomitant]
     Active Substance: ACETAMINOPHEN
     Dosage: UNK
     Dates: start: 20180715
  29. TRASTUZUMAB. [Suspect]
     Active Substance: TRASTUZUMAB
     Dosage: 462 MILLIGRAM, Q3WK
     Route: 041
     Dates: start: 20180608, end: 20180608
  30. TRASTUZUMAB. [Suspect]
     Active Substance: TRASTUZUMAB
     Dosage: 450 MILLIGRAM, Q3WK
     Route: 042
     Dates: start: 20180723, end: 20180904
  31. TRASTUZUMAB. [Suspect]
     Active Substance: TRASTUZUMAB
     Dosage: 420 MILLIGRAM, Q3WK
     Route: 041
     Dates: start: 20181128, end: 20181128
  32. TRASTUZUMAB. [Suspect]
     Active Substance: TRASTUZUMAB
     Dosage: 450 MILLIGRAM, Q3WK
     Route: 042
     Dates: start: 20200515
  33. DOCETAXEL. [Suspect]
     Active Substance: DOCETAXEL
     Dosage: 134.32 MILLIGRAM, Q3WK
     Route: 042
     Dates: start: 20180923
  34. ANASTROZOLE. [Suspect]
     Active Substance: ANASTROZOLE
     Indication: BREAST CANCER METASTATIC
     Dosage: 1 MILLIGRAM, QD
     Route: 048
     Dates: start: 20170324
  35. XGEVA [Suspect]
     Active Substance: DENOSUMAB
     Dosage: UNK
     Route: 065
     Dates: start: 20181017
  36. PANTOPRAZOL [PANTOPRAZOLE] [Concomitant]
     Active Substance: PANTOPRAZOLE
     Dosage: UNK
  37. DEXABENE [Concomitant]
     Dosage: UNK
     Dates: start: 20181107
  38. TRASTUZUMAB. [Suspect]
     Active Substance: TRASTUZUMAB
     Dosage: 534 MILLIGRAM, Q3WK
     Route: 041
     Dates: start: 20170414, end: 20170619
  39. TRASTUZUMAB. [Suspect]
     Active Substance: TRASTUZUMAB
     Dosage: 480 MILLIGRAM, Q3WK
     Route: 042
     Dates: start: 20170828, end: 20171030
  40. TRASTUZUMAB. [Suspect]
     Active Substance: TRASTUZUMAB
     Dosage: 474 MILLIGRAM, Q3WK
     Route: 041
     Dates: start: 20171213, end: 20180514
  41. TRASTUZUMAB. [Suspect]
     Active Substance: TRASTUZUMAB
     Dosage: 534 MILLIGRAM, Q3WK
     Route: 042
     Dates: start: 20170714, end: 20170804
  42. PERTUZUMAB. [Suspect]
     Active Substance: PERTUZUMAB
     Dosage: 420 MILLIGRAM, QWK
     Route: 042
     Dates: start: 20170414, end: 20170619
  43. ULSAL [Concomitant]
     Active Substance: RANITIDINE HYDROCHLORIDE
     Dosage: UNK
     Dates: start: 20170414, end: 20191119
  44. TRITAZIDE [Concomitant]
     Active Substance: HYDROCHLOROTHIAZIDE\RAMIPRIL
     Dosage: UNK
  45. CAL D VITA [Concomitant]
     Dosage: UNK
     Dates: start: 20170505, end: 20190615
  46. ACETYLSALICYLIC ACID [Concomitant]
     Active Substance: ASPIRIN
     Indication: HYPERTENSION
     Dosage: UNK
     Dates: start: 20171120, end: 20190615
  47. NOVALGIN (METAMIZOLE SODIUM) [Concomitant]
     Active Substance: METAMIZOLE SODIUM
     Indication: DYSPNOEA EXERTIONAL
     Dosage: UNK
     Dates: start: 20180715

REACTIONS (15)
  - Diarrhoea [Recovered/Resolved]
  - Paraesthesia [Recovered/Resolved]
  - Dyspnoea [Recovered/Resolved]
  - Dysgeusia [Recovered/Resolved]
  - Ejection fraction decreased [Recovered/Resolved]
  - Hypertension [Recovered/Resolved]
  - Dyspnoea exertional [Recovered/Resolved]
  - Sinusitis [Recovered/Resolved]
  - Renal pain [Recovered/Resolved]
  - Flank pain [Recovered/Resolved]
  - Dyspnoea [Recovered/Resolved]
  - Polyneuropathy [Unknown]
  - Off label use [Unknown]
  - Ejection fraction decreased [Recovering/Resolving]
  - Fatigue [Recovered/Resolved]

NARRATIVE: CASE EVENT DATE: 20171030
